FAERS Safety Report 23655823 (Version 1)
Quarter: 2024Q1

REPORT INFORMATION
  Report Type: Spontaneous
  Country: GB (occurrence: GB)
  Receive Date: 20240321
  Receipt Date: 20240321
  Transmission Date: 20240409
  Serious: Yes (Other)
  Sender: FDA-Public Use
  Company Number: GB-BAXTER-2024BAX013114

PATIENT

DRUGS (10)
  1. TENOFOVIR [Suspect]
     Active Substance: TENOFOVIR
     Indication: Product used for unknown indication
     Dosage: 245 MG (MILLIGRAM) AT AN UNSPECIFIED FREQUENCY
     Route: 048
     Dates: start: 20230504
  2. LAMIVUDINE [Suspect]
     Active Substance: LAMIVUDINE
     Indication: Product used for unknown indication
     Dosage: 50/300 MG AT AN UNSPECIFIED FREQUENCY
     Route: 048
     Dates: start: 20230504
  3. DOLUTEGRAVIR [Suspect]
     Active Substance: DOLUTEGRAVIR
     Indication: Product used for unknown indication
     Dosage: 50/300 MG AT AN UNSPECIFIED FREQUENCY
     Route: 048
     Dates: start: 20230504
  4. FLUCLOXACILLIN [Suspect]
     Active Substance: FLUCLOXACILLIN
     Indication: Cellulitis orbital
     Dosage: UNK (2 REGIMENS)
     Route: 065
  5. FLUCLOXACILLIN [Suspect]
     Active Substance: FLUCLOXACILLIN
     Dosage: 12 G (GRAM) AT AN UNSPECIFIED FREQUENCY
     Route: 042
  6. OMEPRAZOLE [Suspect]
     Active Substance: OMEPRAZOLE
     Indication: Product used for unknown indication
     Dosage: 40 MG (MILLIGRAM) AT AN UNSPECIFIED FREQUENCY
     Route: 048
     Dates: start: 20240201
  7. SODIUM CHLORIDE [Suspect]
     Active Substance: SODIUM CHLORIDE
     Indication: Medication dilution
     Dosage: UNK (2 REGIMENS), (AUTHORIZATION/APPLICATION NUMBER: PL 08828/0034)
     Route: 065
  8. SODIUM CHLORIDE [Suspect]
     Active Substance: SODIUM CHLORIDE
     Dosage: UNK, (AUTHORIZATION/APPLICATION NUMBER: PL 08828/0034)
     Route: 042
  9. WATER [Suspect]
     Active Substance: WATER
     Indication: Medication dilution
     Dosage: UNK (2 REGIMENS)
     Route: 065
  10. WATER [Suspect]
     Active Substance: WATER
     Dosage: UNK
     Route: 042

REACTIONS (1)
  - Thrombosis [Recovering/Resolving]

NARRATIVE: CASE EVENT DATE: 20240219
